FAERS Safety Report 5574413-9 (Version None)
Quarter: 2007Q4

REPORT INFORMATION
  Report Type: 
  Country: None (occurrence: None)
  Receive Date: 20071221
  Receipt Date: 20071218
  Transmission Date: 20080405
  Serious: Yes (Hospitalization)
  Sender: FDA-Public Use
  Company Number: TPA2007A00395

PATIENT

DRUGS (1)
  1. ACTOS [Suspect]
     Dosage: PER ORAL
     Route: 048

REACTIONS (1)
  - HOSPITALISATION [None]
